FAERS Safety Report 7482650-1 (Version None)
Quarter: 2011Q1

REPORT INFORMATION
  Report Type: 
  Country: None (occurrence: None)
  Receive Date: 20110308
  Receipt Date: 20100902
  Transmission Date: 20110831
  Serious: Yes (Other)
  Sender: FDA-Public Use
  Company Number: THYM-1001816

PATIENT

DRUGS (1)
  1. THYMOGLOBULIN [Suspect]
     Dosage: INTRAVENOUS
     Route: 042

REACTIONS (2)
  - CYTOKINE STORM [None]
  - INFUSION RELATED REACTION [None]
